FAERS Safety Report 23990228 (Version 1)
Quarter: 2024Q2

REPORT INFORMATION
  Report Type: Spontaneous
  Country: FR (occurrence: FR)
  Receive Date: 20240619
  Receipt Date: 20240619
  Transmission Date: 20240715
  Serious: Yes (Hospitalization)
  Sender: FDA-Public Use
  Company Number: None

PATIENT
  Age: 90 Year
  Sex: Female

DRUGS (3)
  1. SPIRONOLACTONE [Suspect]
     Active Substance: SPIRONOLACTONE
     Indication: Cardiac failure
     Route: 048
     Dates: start: 20230701
  2. OFLOXACIN [Suspect]
     Active Substance: OFLOXACIN
     Indication: Infection
     Route: 048
     Dates: start: 20230701
  3. AMOXICILLIN [Suspect]
     Active Substance: AMOXICILLIN
     Indication: Infection
     Route: 048
     Dates: start: 20230701

REACTIONS (1)
  - Drug reaction with eosinophilia and systemic symptoms [Recovered/Resolved]

NARRATIVE: CASE EVENT DATE: 20230711
